FAERS Safety Report 20717495 (Version 1)
Quarter: 2022Q2

REPORT INFORMATION
  Report Type: Spontaneous
  Country: HR (occurrence: HR)
  Receive Date: 20220417
  Receipt Date: 20220417
  Transmission Date: 20220721
  Serious: Yes (Other)
  Sender: FDA-Public Use
  Company Number: None

PATIENT
  Age: 60 Year
  Sex: Male

DRUGS (4)
  1. ALPRAZOLAM [Suspect]
     Active Substance: ALPRAZOLAM
     Dosage: UNIT DOSE : 1 GRAM, FREQUENCY TIME : 1 DAYS, THERAPY DURATION : 1 DAYS
     Route: 048
     Dates: start: 20220113, end: 20220113
  2. QUETIAPINE [Suspect]
     Active Substance: QUETIAPINE
     Dosage: UNIT DOSE : 250 MG, FREQUENCY TIME : 1 DAYS,  THERAPY DURATION : 1 DAYS
     Route: 048
     Dates: start: 20220113, end: 20220113
  3. TRAZODONE HYDROCHLORIDE [Suspect]
     Active Substance: TRAZODONE HYDROCHLORIDE
     Dosage: UNIT DOSE : 1.5 GRAM, FREQUENCY TIME : 1 DAYS, THERAPY DURATION : 1 DAYS
     Route: 048
     Dates: start: 20220113, end: 20220113
  4. FLURAZEPAM HYDROCHLORIDE [Suspect]
     Active Substance: FLURAZEPAM HYDROCHLORIDE
     Dosage: UNIT DOSE : 180 MG , FREQUENCY TIME : 1 DAYS, THERAPY DURATION : 1 DAYS
     Route: 048
     Dates: start: 20220113, end: 20220113

REACTIONS (3)
  - Suicide attempt [Unknown]
  - No adverse event [Unknown]
  - Intentional overdose [Unknown]

NARRATIVE: CASE EVENT DATE: 20220113
